FAERS Safety Report 7678512-7 (Version None)
Quarter: 2011Q3

REPORT INFORMATION
  Report Type: 
  Country: None (occurrence: None)
  Receive Date: 20110811
  Receipt Date: 20110802
  Transmission Date: 20111222
  Serious: Yes (Hospitalization)
  Sender: FDA-Public Use
  Company Number: BR-GENENTECH-322565

PATIENT
  Sex: Female
  Weight: 45 kg

DRUGS (1)
  1. RITUXIMAB [Suspect]
     Indication: PRODUCT USED FOR UNKNOWN INDICATION
     Dosage: UNK
     Route: 065
     Dates: start: 20110621, end: 20110621

REACTIONS (9)
  - FUNGAL INFECTION [None]
  - EATING DISORDER [None]
  - COLITIS [None]
  - DIZZINESS [None]
  - DEHYDRATION [None]
  - DISEASE RECURRENCE [None]
  - FALL [None]
  - SKELETAL INJURY [None]
  - PAIN [None]
